FAERS Safety Report 10661526 (Version 1)
Quarter: 2014Q4

REPORT INFORMATION
  Report Type: Spontaneous
  Country: GB (occurrence: None)
  Receive Date: 20141216
  Receipt Date: 20141216
  Transmission Date: 20150529
  Serious: Yes (Hospitalization, Other)
  Sender: FDA-Public Use
  Company Number: FK201406088

PATIENT
  Age: 84 Year
  Sex: Female
  Weight: 58.4 kg

DRUGS (19)
  1. SODIUM CHLORIDE 0.9% [Suspect]
     Active Substance: SODIUM CHLORIDE
     Indication: PARENTERAL NUTRITION
  2. SODIUM GLYCEROPHOSPHATE [Suspect]
     Active Substance: SODIUM GLYCEROPHOSPHATE
     Indication: PARENTERAL NUTRITION
  3. GLUCOSE [Suspect]
     Active Substance: DEXTROSE
     Indication: PARENTERAL NUTRITION
  4. SYNTHAMIN [Suspect]
     Active Substance: AMINO ACIDS
     Indication: PARENTERAL NUTRITION
  5. WATER FOR INJECTIONS [Suspect]
     Active Substance: WATER
     Indication: PARENTERAL NUTRITION
  6. ADDAMEL N [Suspect]
     Active Substance: CHROMIC CHLORIDE\CUPROUS CHLORIDE\FERRIC CHLORIDE\MANGANESE CHLORIDE\POTASSIUM IODIDE\SODIUM FLUORIDE\SODIUM MOLYBDATE DIHYDRATE\SODIUM SELENITE\ZINC CHLORIDE
     Indication: PARENTERAL NUTRITION
  7. NICORANDIL(NICORANDIL) [Concomitant]
  8. SODIUM CHLORIDE (MANUFACTURER UNKNOWN) (SODIUM CHLORIDE) (SODIUM CHLORIDE) [Suspect]
     Active Substance: SODIUM CHLORIDE
     Indication: PARENTERAL NUTRITION
  9. SOLUVIT N [Suspect]
     Active Substance: VITAMINS
     Indication: PARENTERAL NUTRITION
  10. ERYTHROMYCINE(ERYTHROMYCIN) [Concomitant]
  11. FERROUS SULPHATE(FERROUS SULFATE) [Concomitant]
  12. METORMIN(METFORMIN HYDROCHLORIDE) [Concomitant]
  13. CALCIUM CHLORIDE. [Suspect]
     Active Substance: CALCIUM CHLORIDE
     Indication: PARENTERAL NUTRITION
  14. LANSOPRAZOLE(LANSOPRAZOLE) [Concomitant]
  15. POTASSIUM CHLORIDE (MANUFACTURER UNKNOWN) (POTASSIUM CHLORIDE) [Suspect]
     Active Substance: POTASSIUM CHLORIDE
     Indication: PARENTERAL NUTRITION
  16. VITALIPID ADULT (VITAMINS) (VITAMINS) [Suspect]
     Active Substance: ERGOCALCIFEROL\PHYTONADIONE\RETINOL\TOCOPHEROL
     Indication: PARENTERAL NUTRITION
     Route: 042
  17. RAMIPROL(RAMIPRIL) [Concomitant]
  18. CALCIFEROL(ERGOCALCIFEROL) [Concomitant]
  19. MAGNESIUM SULPHATE [Suspect]
     Active Substance: MAGNESIUM SULFATE
     Indication: PARENTERAL NUTRITION

REACTIONS (6)
  - Erythema [None]
  - Dyspnoea [None]
  - Local swelling [None]
  - Carotid artery thrombosis [None]
  - Jugular vein thrombosis [None]
  - Peripheral swelling [None]

NARRATIVE: CASE EVENT DATE: 20141107
